FAERS Safety Report 23277654 (Version 5)
Quarter: 2025Q1

REPORT INFORMATION
  Report Type: Report from Study
  Country: DE (occurrence: DE)
  Receive Date: 20231208
  Receipt Date: 20250221
  Transmission Date: 20250408
  Serious: Yes (Hospitalization)
  Sender: RANBAXY
  Company Number: DE-SUN PHARMACEUTICAL INDUSTRIES LTD-2023RR-420908

PATIENT
  Age: 26 Year
  Sex: Female
  Weight: 82.5 kg

DRUGS (6)
  1. SONIDEGIB [Suspect]
     Active Substance: SONIDEGIB
     Indication: Medulloblastoma
     Dosage: 200 MILLIGRAM, DAILY
     Route: 048
     Dates: start: 20230907, end: 20231116
  2. CISPLATIN [Suspect]
     Active Substance: CISPLATIN
     Indication: Medulloblastoma
     Route: 065
  3. VINCRISTINE [Suspect]
     Active Substance: VINCRISTINE
     Indication: Medulloblastoma
     Route: 042
     Dates: start: 20230911, end: 20231011
  4. LOMUSTINE [Suspect]
     Active Substance: LOMUSTINE
     Indication: Medulloblastoma
     Route: 065
  5. Unacid [Concomitant]
     Indication: Pneumonia
     Route: 048
     Dates: start: 20231109, end: 20231115
  6. Unacid [Concomitant]
     Route: 048
     Dates: start: 20231109, end: 20231115

REACTIONS (1)
  - Pneumonia [Recovered/Resolved]

NARRATIVE: CASE EVENT DATE: 20231116
